FAERS Safety Report 9697574 (Version 1)
Quarter: 2013Q4

REPORT INFORMATION
  Report Type: Spontaneous
  Country: JP (occurrence: JP)
  Receive Date: 20131120
  Receipt Date: 20131120
  Transmission Date: 20140711
  Serious: Yes (Hospitalization)
  Sender: FDA-Public Use
  Company Number: JP-ELI_LILLY_AND_COMPANY-JP201311004295

PATIENT
  Sex: Female

DRUGS (2)
  1. FORTEO [Suspect]
     Indication: PRODUCT USED FOR UNKNOWN INDICATION
     Dosage: UNK
     Route: 058
     Dates: start: 201107, end: 201109
  2. FORTEO [Suspect]
     Dosage: UNK
     Route: 058
     Dates: start: 201111, end: 201308

REACTIONS (2)
  - Hand fracture [Unknown]
  - Dysgeusia [Not Recovered/Not Resolved]
